FAERS Safety Report 10062454 (Version 1)
Quarter: 2014Q2

REPORT INFORMATION
  Report Type: Spontaneous
  Country: JP (occurrence: JP)
  Receive Date: 20140407
  Receipt Date: 20140407
  Transmission Date: 20141212
  Serious: Yes (Other)
  Sender: FDA-Public Use
  Company Number: JP-MYLANLABS-2014S1007072

PATIENT
  Age: 76 Year
  Sex: Male

DRUGS (4)
  1. HYDROCORTISONE [Suspect]
     Dosage: 20 MG/DAY
     Route: 065
  2. PREDNISOLONE [Suspect]
     Dosage: 20 MG/DAY
     Route: 048
  3. INSULIN [Concomitant]
     Indication: DIABETES MELLITUS
     Route: 065
     Dates: start: 2005
  4. LEVOTHYROXINE SODIUM [Concomitant]
     Dosage: 25 MCG/DAY
     Route: 065

REACTIONS (1)
  - Diabetes insipidus [Recovering/Resolving]
